FAERS Safety Report 17574945 (Version 4)
Quarter: 2023Q2

REPORT INFORMATION
  Report Type: Spontaneous
  Country: US (occurrence: US)
  Receive Date: 20200324
  Receipt Date: 20230414
  Transmission Date: 20230722
  Serious: Yes (Other)
  Sender: FDA-Public Use
  Company Number: US-GILEAD-2020-0456124

PATIENT
  Sex: Female
  Weight: 58.503 kg

DRUGS (49)
  1. VIREAD [Suspect]
     Active Substance: TENOFOVIR DISOPROXIL FUMARATE
     Indication: HIV infection
     Dosage: UNK
     Route: 048
     Dates: start: 2001
  2. VIREAD [Suspect]
     Active Substance: TENOFOVIR DISOPROXIL FUMARATE
     Dosage: UNK
     Route: 048
     Dates: start: 20020128, end: 20030303
  3. TRUVADA [Suspect]
     Active Substance: EMTRICITABINE\TENOFOVIR DISOPROXIL FUMARATE
     Indication: HIV infection
     Dosage: UNK
     Route: 048
     Dates: start: 2001
  4. TRUVADA [Suspect]
     Active Substance: EMTRICITABINE\TENOFOVIR DISOPROXIL FUMARATE
     Dosage: UNK
     Route: 048
     Dates: start: 2005, end: 2019
  5. TRUVADA [Suspect]
     Active Substance: EMTRICITABINE\TENOFOVIR DISOPROXIL FUMARATE
     Dosage: UNK
     Route: 048
     Dates: start: 2005, end: 2012
  6. STRIBILD [Suspect]
     Active Substance: COBICISTAT\ELVITEGRAVIR\EMTRICITABINE\TENOFOVIR DISOPROXIL FUMARATE
     Indication: HIV infection
     Dosage: UNK
     Route: 048
     Dates: start: 2001
  7. INTELENCE [Concomitant]
     Active Substance: ETRAVIRINE
  8. ISENTRESS [Concomitant]
     Active Substance: RALTEGRAVIR POTASSIUM
  9. NORVIR [Concomitant]
     Active Substance: RITONAVIR
  10. TRIUMEQ [Concomitant]
     Active Substance: ABACAVIR SULFATE\DOLUTEGRAVIR SODIUM\LAMIVUDINE
  11. FAMOTIDINE [Concomitant]
     Active Substance: FAMOTIDINE
  12. VALTREX [Concomitant]
     Active Substance: VALACYCLOVIR HYDROCHLORIDE
  13. VICODIN [Concomitant]
     Active Substance: ACETAMINOPHEN\HYDROCODONE BITARTRATE
  14. ZOFRAN [Concomitant]
     Active Substance: ONDANSETRON HYDROCHLORIDE
  15. SOLODYN [Concomitant]
     Active Substance: MINOCYCLINE HYDROCHLORIDE
  16. SULFAMETHOXAZOLE [Concomitant]
     Active Substance: SULFAMETHOXAZOLE
  17. TAMIFLU [Concomitant]
     Active Substance: OSELTAMIVIR PHOSPHATE
  18. TIZANIDINE [Concomitant]
     Active Substance: TIZANIDINE
  19. TRAMADOL [Concomitant]
     Active Substance: TRAMADOL
  20. TRIMEXIUM [Concomitant]
  21. ACETAMINOPHEN [Concomitant]
     Active Substance: ACETAMINOPHEN
  22. AMBIEN [Concomitant]
     Active Substance: ZOLPIDEM TARTRATE
  23. AMOXICILLIN [Concomitant]
     Active Substance: AMOXICILLIN
  24. ASPIRIN [Concomitant]
     Active Substance: ASPIRIN
  25. AZITHROMYCIN [Concomitant]
     Active Substance: AZITHROMYCIN
  26. CELEBREX [Concomitant]
     Active Substance: CELECOXIB
  27. CELECOXIB [Concomitant]
     Active Substance: CELECOXIB
  28. CIPROFLOXACIN [Concomitant]
     Active Substance: CIPROFLOXACIN
  29. DOXYCYCLINE [Concomitant]
     Active Substance: DOXYCYCLINE
  30. ENJUVIA [Concomitant]
     Active Substance: ESTROGENS, CONJUGATED SYNTHETIC B
  31. FLUCONAZOLE [Concomitant]
     Active Substance: FLUCONAZOLE
  32. GRANISETRON [Concomitant]
     Active Substance: GRANISETRON
  33. HYDROCODONE [Concomitant]
     Active Substance: HYDROCODONE
  34. LEVOFLOXACIN [Concomitant]
     Active Substance: LEVOFLOXACIN
  35. LYRICA [Concomitant]
     Active Substance: PREGABALIN
  36. METHYLPREDNISOLONE [Concomitant]
     Active Substance: METHYLPREDNISOLONE
  37. MORPHINE [Concomitant]
     Active Substance: MORPHINE
  38. NABUMETON [Concomitant]
  39. NAPROXEN [Concomitant]
     Active Substance: NAPROXEN
  40. NOXAFIL [Concomitant]
     Active Substance: POSACONAZOLE
  41. ONDANSETRON [Concomitant]
     Active Substance: ONDANSETRON
  42. OXAPROZIN [Concomitant]
     Active Substance: OXAPROZIN
  43. PREMARIN [Concomitant]
     Active Substance: ESTROGENS, CONJUGATED
  44. PREZCOBIX [Concomitant]
     Active Substance: COBICISTAT\DARUNAVIR ETHANOLATE
  45. PROCHLORPERAZINE [Concomitant]
     Active Substance: PROCHLORPERAZINE
  46. PROMETHAZINE [Concomitant]
     Active Substance: PROMETHAZINE HYDROCHLORIDE
  47. PROPOXYPHENE [Concomitant]
     Active Substance: PROPOXYPHENE
  48. RANITIDINE [Concomitant]
     Active Substance: RANITIDINE
  49. ACETAMINOPHEN\CHLORZOXAZONE [Concomitant]
     Active Substance: ACETAMINOPHEN\CHLORZOXAZONE

REACTIONS (10)
  - Multiple fractures [Not Recovered/Not Resolved]
  - Osteonecrosis [Unknown]
  - Osteopenia [Not Recovered/Not Resolved]
  - Bone demineralisation [Unknown]
  - Pain [Not Recovered/Not Resolved]
  - Emotional distress [Not Recovered/Not Resolved]
  - Anxiety [Not Recovered/Not Resolved]
  - Anhedonia [Not Recovered/Not Resolved]
  - Economic problem [Unknown]
  - Bone density decreased [Unknown]

NARRATIVE: CASE EVENT DATE: 20070101
